FAERS Safety Report 24717760 (Version 1)
Quarter: 2024Q4

REPORT INFORMATION
  Report Type: Spontaneous
  Country: US (occurrence: US)
  Receive Date: 20241210
  Receipt Date: 20241210
  Transmission Date: 20250115
  Serious: Yes (Other)
  Sender: DR REDDYS
  Company Number: US-DRL-USA-LIT/USA/24/0018060

PATIENT

DRUGS (1)
  1. BIVALIRUDIN [Suspect]
     Active Substance: BIVALIRUDIN
     Indication: Anticoagulant therapy
     Dosage: BIVALIRUDIN INFUSION WAS INITIATED AT 0.2 MG/KG/HR 2-6 HOURS AFTER AP SHUNT

REACTIONS (1)
  - Drug ineffective [Unknown]
